FAERS Safety Report 8852032 (Version 1)
Quarter: 2012Q4

REPORT INFORMATION
  Report Type: 
  Country: CN (occurrence: CN)
  Receive Date: 20121022
  Receipt Date: 20121022
  Transmission Date: 20130627
  Serious: Yes (Death, Hospitalization, Other)
  Sender: FDA-Public Use
  Company Number: CN-ASTELLAS-2012US010303

PATIENT
  Age: 83 Year
  Sex: Male

DRUGS (1)
  1. TARCEVA [Suspect]
     Indication: NON-SMALL CELL LUNG CANCER
     Dosage: 150 mg, UID/QD
     Route: 048

REACTIONS (6)
  - Septic shock [Fatal]
  - Respiratory failure [Unknown]
  - Nutritional condition abnormal [Unknown]
  - Small intestinal perforation [Unknown]
  - Metastases to adrenals [Unknown]
  - Diarrhoea [Unknown]
